FAERS Safety Report 24641236 (Version 1)
Quarter: 2024Q4

REPORT INFORMATION
  Report Type: Spontaneous
  Country: US (occurrence: None)
  Receive Date: 20241119
  Receipt Date: 20241119
  Transmission Date: 20250115
  Serious: No
  Sender: Public
  Company Number: None

PATIENT
  Age: 66 Year
  Sex: Male

DRUGS (1)
  1. LENALIDOMIDE [Suspect]
     Active Substance: LENALIDOMIDE
     Indication: Plasma cell myeloma
     Dosage: 25MG QD ORAL ?
     Route: 048
     Dates: start: 20240129

REACTIONS (4)
  - Rash [None]
  - Therapy cessation [None]
  - Rash [None]
  - Rash [None]

NARRATIVE: CASE EVENT DATE: 20240815
